FAERS Safety Report 25220418 (Version 1)
Quarter: 2025Q2

REPORT INFORMATION
  Report Type: Spontaneous
  Country: US (occurrence: US)
  Receive Date: 20250421
  Receipt Date: 20250421
  Transmission Date: 20250717
  Serious: Yes (Hospitalization, Other)
  Sender: PFIZER
  Company Number: US-PFIZER INC-PV202500044306

PATIENT
  Age: 56 Year
  Sex: Male

DRUGS (4)
  1. IRINOTECAN HYDROCHLORIDE [Suspect]
     Active Substance: IRINOTECAN HYDROCHLORIDE
     Indication: Rectal adenocarcinoma
  2. LEUCOVORIN CALCIUM [Concomitant]
     Active Substance: LEUCOVORIN CALCIUM
     Indication: Rectal adenocarcinoma
  3. FLUOROURACIL [Concomitant]
     Active Substance: FLUOROURACIL
     Indication: Rectal adenocarcinoma
  4. CETUXIMAB [Concomitant]
     Active Substance: CETUXIMAB
     Indication: Rectal adenocarcinoma

REACTIONS (5)
  - Diarrhoea [Unknown]
  - Mucosal inflammation [Unknown]
  - Lactic acidosis [Unknown]
  - Leukocytosis [Unknown]
  - Blood creatinine increased [Unknown]
